FAERS Safety Report 7646845-6 (Version None)
Quarter: 2011Q3

REPORT INFORMATION
  Report Type: 
  Country: None (occurrence: None)
  Receive Date: 20110801
  Receipt Date: 20110718
  Transmission Date: 20111222
  Serious: Yes (Other)
  Sender: FDA-Public Use
  Company Number: US-ELI_LILLY_AND_COMPANY-US201106006100

PATIENT
  Sex: Female
  Weight: 60.317 kg

DRUGS (2)
  1. AVASTIN [Concomitant]
     Dosage: UNK, MONTHLY (1/M)
  2. FORTEO [Suspect]
     Indication: OSTEOPOROSIS
     Dosage: 20 UG, QD
     Dates: start: 20110602

REACTIONS (2)
  - MACULAR DEGENERATION [None]
  - ABDOMINAL PAIN UPPER [None]
